FAERS Safety Report 4992602-9 (Version None)
Quarter: 2006Q1

REPORT INFORMATION
  Report Type: 
  Country: None (occurrence: None)
  Receive Date: 20060313
  Receipt Date: 20051229
  Transmission Date: 20060701
  Serious: Yes (Hospitalization)
  Sender: FDA-Public Use
  Company Number: PHEH2005US13936

PATIENT
  Age: 52 Year
  Sex: Female

DRUGS (1)
  1. TRILEPTAL [Suspect]
     Indication: AFFECTIVE DISORDER
     Dosage: 300 MG, BID, ORAL
     Route: 048
     Dates: start: 20040701

REACTIONS (3)
  - DRUG ADMINISTRATION ERROR [None]
  - LETHARGY [None]
  - PSYCHOTIC DISORDER [None]
